FAERS Safety Report 19486011 (Version 2)
Quarter: 2021Q3

REPORT INFORMATION
  Report Type: Spontaneous
  Country: US (occurrence: US)
  Receive Date: 20210702
  Receipt Date: 20210903
  Transmission Date: 20211014
  Serious: No
  Sender: FDA-Public Use
  Company Number: US-PFIZER INC-2021606543

PATIENT
  Age: 75 Year
  Sex: Female

DRUGS (2)
  1. MEKTOVI [Suspect]
     Active Substance: BINIMETINIB
     Indication: HEPATIC CANCER
     Dosage: 45 MG
  2. BRAFTOVI [Suspect]
     Active Substance: ENCORAFENIB
     Indication: HEPATIC CANCER
     Dosage: 300 MG

REACTIONS (4)
  - Memory impairment [Unknown]
  - Diarrhoea [Unknown]
  - Emotional disorder [Unknown]
  - Off label use [Unknown]
